FAERS Safety Report 18114604 (Version 3)
Quarter: 2021Q3

REPORT INFORMATION
  Report Type: Spontaneous
  Country: US (occurrence: US)
  Receive Date: 20200805
  Receipt Date: 20210707
  Transmission Date: 20211014
  Serious: Yes (Death, Other)
  Sender: FDA-Public Use
  Company Number: US-GLAXOSMITHKLINE-US2020151135

PATIENT
  Sex: Male

DRUGS (9)
  1. ZANTAC [Suspect]
     Active Substance: RANITIDINE HYDROCHLORIDE
     Indication: ABDOMINAL DISCOMFORT
     Dosage: 25 MG, OCCASIONAL
     Route: 065
     Dates: start: 198401, end: 201801
  2. ZANTAC [Suspect]
     Active Substance: RANITIDINE HYDROCHLORIDE
     Route: 065
  3. RANITIDINE CAPSULE [Suspect]
     Active Substance: RANITIDINE
     Indication: ABDOMINAL DISCOMFORT
     Dosage: 25 MG, OCCASIONAL
     Route: 065
     Dates: start: 198401, end: 201801
  4. RANITIDINE. [Suspect]
     Active Substance: RANITIDINE
     Indication: ABDOMINAL DISCOMFORT
     Dosage: 25 MG, OCCASIONAL
     Route: 065
     Dates: start: 199801, end: 201801
  5. ZANTAC [Suspect]
     Active Substance: RANITIDINE HYDROCHLORIDE
     Indication: ABDOMINAL DISCOMFORT
     Dosage: 25 MG, OCCASIONAL
     Route: 065
     Dates: start: 198401, end: 201801
  6. RANITIDINE. [Suspect]
     Active Substance: RANITIDINE
     Route: 065
  7. RANITIDINE HCI [Suspect]
     Active Substance: RANITIDINE HYDROCHLORIDE
     Route: 065
  8. ZANTAC [Suspect]
     Active Substance: RANITIDINE HYDROCHLORIDE
     Indication: ABDOMINAL DISCOMFORT
     Dosage: 25 MG, OCCASIONAL
     Route: 065
     Dates: start: 198401, end: 201801
  9. RANITIDINE. [Suspect]
     Active Substance: RANITIDINE
     Indication: ABDOMINAL DISCOMFORT
     Dosage: 25 MG, OCCASIONAL
     Route: 065
     Dates: start: 199801, end: 201801

REACTIONS (3)
  - Gastric cancer [Unknown]
  - Lung neoplasm malignant [Unknown]
  - Neoplasm malignant [Fatal]
